FAERS Safety Report 12121754 (Version 2)
Quarter: 2016Q1

REPORT INFORMATION
  Report Type: Spontaneous
  Country: US (occurrence: US)
  Receive Date: 20160226
  Receipt Date: 20160226
  Transmission Date: 20160526
  Serious: No
  Sender: FDA-Public Use
  Company Number: US-ALLERGAN-1207821US

PATIENT
  Age: 84 Year
  Sex: Female

DRUGS (6)
  1. REFRESH OPTIVE [Suspect]
     Active Substance: CARBOXYMETHYLCELLULOSE SODIUM\GLYCERIN
     Indication: SJOGREN^S SYNDROME
     Dosage: 2 GTT, PRN
     Route: 047
     Dates: start: 201204, end: 201205
  2. HEART PILL UNSPECIFIED [Concomitant]
     Indication: CARDIAC DISORDER
     Dosage: 1 PO QD
     Route: 048
  3. REFRESH PM                         /00880201/ [Suspect]
     Active Substance: POLYVINYL ALCOHOL\POVIDONE
     Indication: SJOGREN^S SYNDROME
     Dosage: ONE RIBBON QHS
     Route: 047
  4. B12 INJECTIONS [Concomitant]
     Indication: PERNICIOUS ANAEMIA
     Dosage: UNK
     Route: 030
  5. REFRESH OPTIVE SENSITIVE [Suspect]
     Active Substance: CARBOXYMETHYLCELLULOSE SODIUM\GLYCERIN
     Indication: SJOGREN^S SYNDROME
     Dosage: 2 GTT, 6-10 TIMES PER DAY
     Route: 047
     Dates: start: 201205
  6. UNSPECIFIED HYPERTENSION MEDICATION [Concomitant]
     Indication: HYPERTENSION
     Dosage: 1 PO QD
     Route: 048

REACTIONS (2)
  - Vision blurred [Not Recovered/Not Resolved]
  - Eye pruritus [Recovered/Resolved]

NARRATIVE: CASE EVENT DATE: 201204
